FAERS Safety Report 9304040 (Version 1)
Quarter: 2013Q2

REPORT INFORMATION
  Report Type: Report from Study
  Country: ES (occurrence: ES)
  Receive Date: 20130522
  Receipt Date: 20130522
  Transmission Date: 20140414
  Serious: Yes (Death, Other)
  Sender: FDA-Public Use
  Company Number: ES-ROCHE-1225354

PATIENT
  Age: 46 Year
  Sex: Female

DRUGS (6)
  1. CELLCEPT [Suspect]
     Indication: TRANSPLANT REJECTION
     Route: 065
  2. TACROLIMUS [Suspect]
     Indication: TRANSPLANT REJECTION
     Route: 065
  3. METHYLPREDNISOLONE [Suspect]
     Indication: TRANSPLANT REJECTION
     Route: 065
  4. COLISTIN [Concomitant]
  5. AMIKACIN [Concomitant]
  6. MEROPENEM [Concomitant]

REACTIONS (1)
  - Transplant rejection [Fatal]
